FAERS Safety Report 5154561-8 (Version None)
Quarter: 2006Q4

REPORT INFORMATION
  Report Type: 
  Country: None (occurrence: None)
  Receive Date: 20061114
  Receipt Date: 20061102
  Transmission Date: 20070319
  Serious: Yes (Other)
  Sender: FDA-Public Use
  Company Number: 2006136112

PATIENT
  Sex: Male

DRUGS (5)
  1. NICASSIST PATCH (NICOTINE) [Suspect]
     Indication: SMOKING CESSATION THERAPY
     Dosage: 5, 10 AND 15 MG UNSPECIFIED, TRANSDERMAL
     Route: 062
  2. BOOTS NICASSIST 10 MG INHALATOR (NICOTINE) [Suspect]
     Indication: SMOKING CESSATION THERAPY
     Dosage: UNSPECIFIED, INHALATION
     Route: 055
  3. BOOTS NICASSIST 2 MG MINT GUM (NICOTINE) [Suspect]
     Indication: SMOKING CESSATION THERAPY
     Dosage: UNSPECIFIED, ORAL
     Route: 048
  4. BOOTS NICASSIST 4 MG MINT GUM (NICOTINE) [Suspect]
     Indication: SMOKING CESSATION THERAPY
     Dosage: UNSPECIFIED, ORAL
     Route: 048
  5. NICOTINE [Suspect]
     Indication: SMOKING CESSATION THERAPY
     Dosage: UNSPECIFIED, ORAL
     Route: 048

REACTIONS (1)
  - DEPENDENCE [None]
